FAERS Safety Report 17929759 (Version 4)
Quarter: 2020Q3

REPORT INFORMATION
  Report Type: Spontaneous
  Country: US (occurrence: US)
  Receive Date: 20200623
  Receipt Date: 20200702
  Transmission Date: 20201103
  Serious: No
  Sender: FDA-Public Use
  Company Number: US-PFIZER INC-2020241382

PATIENT
  Age: 74 Year
  Sex: Female
  Weight: 63.05 kg

DRUGS (4)
  1. IBRANCE [Suspect]
     Active Substance: PALBOCICLIB
     Dosage: 100 MG, 1X/DAY
  2. IBRANCE [Suspect]
     Active Substance: PALBOCICLIB
     Dosage: 100 MG, CYCLIC (1 TABLET FOR 21 DAYS AND OFF 7 DAYS)
     Route: 048
     Dates: start: 20200602, end: 20200622
  3. RAMPRIL [Concomitant]
     Active Substance: RAMIPRIL
     Dosage: 10 MG
  4. IBRANCE [Suspect]
     Active Substance: PALBOCICLIB
     Indication: BREAST CANCER METASTATIC
     Dosage: 100 MG, CYCLIC (1 TABLET FOR 21 DAYS AND OFF 7 DAYS)
     Route: 048
     Dates: start: 20200602

REACTIONS (10)
  - Fatigue [Recovered/Resolved]
  - Crying [Unknown]
  - Illness [Unknown]
  - Depression [Unknown]
  - Anal incontinence [Unknown]
  - Somnolence [Unknown]
  - Asthenia [Unknown]
  - Blood pressure decreased [Recovered/Resolved]
  - Gastric disorder [Unknown]
  - Diarrhoea [Recovered/Resolved]

NARRATIVE: CASE EVENT DATE: 202006
